FAERS Safety Report 5426943-8 (Version None)
Quarter: 2007Q3

REPORT INFORMATION
  Report Type: 
  Country: None (occurrence: None)
  Receive Date: 20070827
  Receipt Date: 20070821
  Transmission Date: 20080115
  Serious: Yes (Hospitalization, Other)
  Sender: FDA-Public Use
  Company Number: SE-ABBOTT-06P-150-0323411-00

PATIENT
  Sex: Female

DRUGS (21)
  1. HUMIRA [Suspect]
     Indication: RHEUMATOID ARTHRITIS
     Route: 058
     Dates: start: 20030506, end: 20050223
  2. METHOTREXATE [Concomitant]
     Indication: RHEUMATOID ARTHRITIS
     Route: 048
  3. METHOTREXATE [Concomitant]
  4. PREDNISOLONE [Concomitant]
     Indication: DRUG USE FOR UNKNOWN INDICATION
     Route: 048
  5. BRUFEN RETARD [Concomitant]
     Indication: DRUG USE FOR UNKNOWN INDICATION
     Route: 048
  6. METHOJECT [Concomitant]
     Indication: RHEUMATOID ARTHRITIS
     Route: 050
  7. WARFARIN SODIUM [Concomitant]
     Indication: DRUG USE FOR UNKNOWN INDICATION
     Route: 048
     Dates: start: 20040101
  8. SIMVASTATIN [Concomitant]
     Indication: DRUG USE FOR UNKNOWN INDICATION
     Route: 048
  9. LEKOVIT CA [Concomitant]
     Indication: DRUG USE FOR UNKNOWN INDICATION
     Route: 048
  10. HEPARIN-FRACTION, SODIUM SALT [Concomitant]
     Indication: DRUG USE FOR UNKNOWN INDICATION
     Dosage: WHEN PROTHROMBIN IN COMPLEX {1.8
     Route: 050
  11. METOPROLOL TARTRATE [Concomitant]
     Indication: DRUG USE FOR UNKNOWN INDICATION
     Route: 048
  12. PREDNISOLONE [Concomitant]
     Route: 048
  13. ZOPICLONE [Concomitant]
     Indication: DRUG USE FOR UNKNOWN INDICATION
     Route: 048
  14. BUDESONIDE [Concomitant]
     Indication: DRUG USE FOR UNKNOWN INDICATION
     Route: 055
  15. ACETYLCYSTEINE [Concomitant]
     Indication: DRUG USE FOR UNKNOWN INDICATION
     Route: 048
  16. PARACETAMOL [Concomitant]
     Indication: DRUG USE FOR UNKNOWN INDICATION
     Route: 048
  17. NORFLOXACIN [Concomitant]
     Indication: DRUG USE FOR UNKNOWN INDICATION
     Route: 048
  18. RITUXIMAB [Concomitant]
     Indication: RHEUMATOID ARTHRITIS
  19. CYCLOFOSFAMID [Concomitant]
     Indication: DRUG USE FOR UNKNOWN INDICATION
  20. TNF-INHIBITOR [Concomitant]
     Indication: DRUG USE FOR UNKNOWN INDICATION
     Dates: start: 20020801
  21. TNF-INHIBITOR [Concomitant]

REACTIONS (14)
  - ANAEMIA [None]
  - CARDIAC DISORDER [None]
  - CARDIAC VALVE DISEASE [None]
  - CARDIAC VALVE VEGETATION [None]
  - CEREBRAL HAEMORRHAGE [None]
  - CEREBRAL INFARCTION [None]
  - CEREBROVASCULAR ACCIDENT [None]
  - EMBOLISM [None]
  - INFLAMMATION [None]
  - MITRAL VALVE DISEASE [None]
  - MYOCARDIAL INFARCTION [None]
  - RHEUMATOID ARTHRITIS [None]
  - RHEUMATOID NODULE [None]
  - TRANSIENT ISCHAEMIC ATTACK [None]
